FAERS Safety Report 16407769 (Version 2)
Quarter: 2020Q1

REPORT INFORMATION
  Report Type: Report from Study
  Country: FR (occurrence: FR)
  Receive Date: 20190609
  Receipt Date: 20200114
  Transmission Date: 20200409
  Serious: Yes (Hospitalization)
  Sender: FDA-Public Use
  Company Number: FR-EMD SERONO-9094548

PATIENT
  Age: 60 Year
  Sex: Male
  Weight: 78 kg

DRUGS (2)
  1. CETUXIMAB. [Suspect]
     Active Substance: CETUXIMAB
     Indication: SQUAMOUS CELL CARCINOMA OF HEAD AND NECK
     Route: 042
     Dates: start: 20190404, end: 20190404
  2. AVELUMAB [Suspect]
     Active Substance: AVELUMAB
     Indication: SQUAMOUS CELL CARCINOMA OF HEAD AND NECK
     Route: 042
     Dates: start: 20190404, end: 20190404

REACTIONS (1)
  - Infusion related reaction [Recovered/Resolved]

NARRATIVE: CASE EVENT DATE: 20190404
